FAERS Safety Report 12676288 (Version 3)
Quarter: 2017Q1

REPORT INFORMATION
  Report Type: Spontaneous
  Country: US (occurrence: US)
  Receive Date: 20160823
  Receipt Date: 20170322
  Transmission Date: 20170428
  Serious: Yes (Hospitalization, Other)
  Sender: FDA-Public Use
  Company Number: US-TEVA-686830USA

PATIENT
  Age: 45 Year
  Sex: Female
  Weight: 57.66 kg

DRUGS (5)
  1. DOXORUBICIN [Suspect]
     Active Substance: DOXORUBICIN
     Indication: BREAST CANCER
     Dosage: 2 MG/ML, 200 MG OR 60 MG/M2
     Route: 065
     Dates: start: 20150423, end: 20150605
  2. ONDANSETRON [Concomitant]
     Active Substance: ONDANSETRON
  3. DEXAMETHASONE. [Concomitant]
     Active Substance: DEXAMETHASONE
  4. APREPITANT. [Concomitant]
     Active Substance: APREPITANT
  5. CYCLOPHOSPHAMIDE. [Suspect]
     Active Substance: CYCLOPHOSPHAMIDE
     Dosage: 600 MG/M2
     Route: 065
     Dates: start: 20150423, end: 20150605

REACTIONS (13)
  - Neuropathy peripheral [Not Recovered/Not Resolved]
  - Nausea [Unknown]
  - Abasia [Recovering/Resolving]
  - Apparent death [Recovered/Resolved]
  - Weight decreased [Unknown]
  - Muscular weakness [Recovering/Resolving]
  - Electric shock [Unknown]
  - Sensory disturbance [Unknown]
  - Fatigue [Unknown]
  - Pain in extremity [Not Recovered/Not Resolved]
  - Suicidal ideation [Unknown]
  - Neuropathy peripheral [Not Recovered/Not Resolved]
  - Paraesthesia [Recovering/Resolving]

NARRATIVE: CASE EVENT DATE: 20150522
